FAERS Safety Report 20888100 (Version 1)
Quarter: 2022Q2

REPORT INFORMATION
  Report Type: Spontaneous
  Country: US (occurrence: US)
  Receive Date: 20220529
  Receipt Date: 20220529
  Transmission Date: 20220720
  Serious: No
  Sender: FDA-Public Use
  Company Number: US-AMGEN-USASP2022085979

PATIENT
  Sex: Female

DRUGS (2)
  1. LUMAKRAS [Suspect]
     Active Substance: SOTORASIB
     Indication: Non-small cell lung cancer
     Dosage: UNK
     Route: 065
     Dates: start: 202102
  2. LUMAKRAS [Suspect]
     Active Substance: SOTORASIB
     Dosage: UNK, HALF THE DOSE
     Route: 065

REACTIONS (1)
  - Liver function test increased [Unknown]
